FAERS Safety Report 7002703-1 (Version None)
Quarter: 2010Q3

REPORT INFORMATION
  Report Type: 
  Country: None (occurrence: None)
  Receive Date: 20100917
  Receipt Date: 20100917
  Transmission Date: 20110219
  Serious: No
  Sender: FDA-Public Use
  Company Number: None

PATIENT
  Age: 62 Year
  Sex: Female
  Weight: 63.6 kg

DRUGS (1)
  1. FORTEO [Suspect]
     Indication: BONE DENSITY ABNORMAL
     Dosage: 2.4ML ONE DOSE STOMACH AREA
     Dates: start: 20100720

REACTIONS (3)
  - FEELING HOT [None]
  - FEELING JITTERY [None]
  - INSOMNIA [None]
